FAERS Safety Report 7513746-3 (Version None)
Quarter: 2011Q2

REPORT INFORMATION
  Report Type: 
  Country: None (occurrence: None)
  Receive Date: 20110531
  Receipt Date: 20110527
  Transmission Date: 20111010
  Serious: Yes (Other)
  Sender: FDA-Public Use
  Company Number: JP-PFIZER INC-2011115259

PATIENT
  Age: 68 Year
  Sex: Male

DRUGS (5)
  1. LIPITOR [Suspect]
     Dosage: 10 MG, DAILY
     Route: 048
     Dates: start: 20050401, end: 20070101
  2. LIPITOR [Suspect]
     Dosage: 5 MG, DAILY
     Route: 048
     Dates: start: 20070101, end: 20100401
  3. LIPITOR [Suspect]
     Dosage: 10 MG, DAILY
     Route: 048
     Dates: start: 20100401, end: 20110423
  4. ALLEGRA [Suspect]
     Indication: SEASONAL ALLERGY
     Dosage: 120 MG, DAILY
     Route: 048
     Dates: start: 20110307, end: 20110411
  5. EPADEL [Suspect]
     Dosage: UNK
     Route: 048
     Dates: start: 20060801, end: 20100401

REACTIONS (1)
  - PLATELET COUNT DECREASED [None]
